FAERS Safety Report 13351078 (Version 2)
Quarter: 2018Q1

REPORT INFORMATION
  Report Type: Spontaneous
  Country: US (occurrence: US)
  Receive Date: 20170320
  Receipt Date: 20180323
  Transmission Date: 20180508
  Serious: No
  Sender: FDA-Public Use
  Company Number: US-PFIZER INC-2017113904

PATIENT
  Age: 83 Year
  Sex: Female

DRUGS (2)
  1. NORVASC [Suspect]
     Active Substance: AMLODIPINE BESYLATE
     Dosage: UNK
  2. ALOE [Suspect]
     Active Substance: ALOE
     Dosage: UNK

REACTIONS (1)
  - Drug hypersensitivity [Unknown]
